FAERS Safety Report 7002355-0 (Version None)
Quarter: 2010Q3

REPORT INFORMATION
  Report Type: 
  Country: None (occurrence: None)
  Receive Date: 20100920
  Receipt Date: 20100329
  Transmission Date: 20110219
  Serious: Yes (Other)
  Sender: FDA-Public Use
  Company Number: US-ASTRAZENECA-2010SE03963

PATIENT
  Sex: Male

DRUGS (5)
  1. SEROQUEL [Suspect]
     Route: 048
     Dates: start: 20021009
  2. NEURONTIN [Concomitant]
     Indication: PAIN
     Dates: start: 20050919
  3. CELEXA [Concomitant]
     Dates: start: 20050919
  4. TYLENOL [Concomitant]
     Dates: start: 20021125
  5. KLONOPIN [Concomitant]
     Dates: start: 20021009

REACTIONS (2)
  - DIABETES MELLITUS [None]
  - PANCREATITIS [None]
